FAERS Safety Report 10232537 (Version 1)
Quarter: 2014Q2

REPORT INFORMATION
  Report Type: Spontaneous
  Country: FR (occurrence: FR)
  Receive Date: 20140612
  Receipt Date: 20140612
  Transmission Date: 20141212
  Serious: Yes (Hospitalization)
  Sender: FDA-Public Use
  Company Number: FR-JNJFOC-20140606217

PATIENT
  Sex: Female

DRUGS (15)
  1. XARELTO [Suspect]
     Indication: PRODUCT USED FOR UNKNOWN INDICATION
     Route: 048
     Dates: start: 201209, end: 20140507
  2. CORDARONE [Suspect]
     Indication: PRODUCT USED FOR UNKNOWN INDICATION
     Route: 048
     Dates: start: 20140115, end: 20140507
  3. LASILIX [Suspect]
     Indication: PRODUCT USED FOR UNKNOWN INDICATION
     Route: 048
     Dates: start: 20140423, end: 20140509
  4. LEVOTHYROX [Concomitant]
     Route: 048
  5. DOLIPRANE [Concomitant]
     Route: 065
  6. PROZAC [Concomitant]
     Route: 048
  7. KARDEGIC [Concomitant]
     Route: 065
  8. TARDYFERON [Concomitant]
     Route: 065
  9. SERETIDE [Concomitant]
     Route: 065
  10. VENTOLIN [Concomitant]
     Route: 065
  11. DIFFU K [Concomitant]
     Route: 065
  12. TRIATEC [Concomitant]
     Route: 048
  13. TEMESTA [Concomitant]
     Route: 048
  14. BISOPROLOL [Concomitant]
     Route: 048
  15. IMOVANE [Concomitant]
     Route: 048

REACTIONS (1)
  - Thrombocytopenia [Recovered/Resolved]
